FAERS Safety Report 11713551 (Version 1)
Quarter: 2015Q4

REPORT INFORMATION
  Report Type: Spontaneous
  Country: US (occurrence: None)
  Receive Date: 20151106
  Receipt Date: 20151106
  Transmission Date: 20160304
  Serious: No
  Sender: FDA-Public Use
  Company Number: None

PATIENT
  Weight: 73.48 kg

DRUGS (1)
  1. REXALL SINUS NASAL SPRAY 12 HOUR RELIEF LOT #153001G [Suspect]
     Active Substance: OXYMETAZOLINE
     Indication: NASOPHARYNGITIS
     Dosage: 2-3 PUMPS PER NASTRAL, TAKEN UNDER THE TONGUE
     Dates: start: 20151105, end: 20151105

REACTIONS (5)
  - Eye irritation [None]
  - Application site pain [None]
  - Throat irritation [None]
  - Burning sensation [None]
  - Sinus disorder [None]

NARRATIVE: CASE EVENT DATE: 20151105
